FAERS Safety Report 4490907-1 (Version None)
Quarter: 2004Q4

REPORT INFORMATION
  Report Type: 
  Country: None (occurrence: None)
  Receive Date: 20041027
  Receipt Date: 20041018
  Transmission Date: 20050328
  Serious: Yes (Death)
  Sender: FDA-Public Use
  Company Number: 2004-BP-07668RO

PATIENT
  Age: 76 Year
  Sex: Female

DRUGS (14)
  1. DEXAMETHASONE [Suspect]
     Indication: MULTIPLE MYELOMA
     Dosage: 40 MG PER DAY/CYCLE , PO
     Route: 048
     Dates: start: 20011103, end: 20011209
  2. AMITRIPTYLINE HCL [Concomitant]
  3. OXYCODONE [Concomitant]
  4. ZOLPIDEM [Concomitant]
  5. VERAPAMIL [Concomitant]
  6. MULTI-VITAMINS [Concomitant]
  7. CALCIUM GLUCONATE [Concomitant]
  8. LANSOPRAZOLE [Concomitant]
  9. BACTRIM [Concomitant]
  10. MIRTAZAPINE [Concomitant]
  11. DOCUSATE SODIUM [Concomitant]
  12. CELECOXIB [Concomitant]
  13. HYDROCODONE W/ACETAMINOPHEN (VICODIN) [Concomitant]
  14. RANITIDINE [Concomitant]

REACTIONS (4)
  - MALIGNANT NEOPLASM PROGRESSION [None]
  - MALIGNANT PLEURAL EFFUSION [None]
  - MUCOSAL INFLAMMATION [None]
  - MULTIPLE MYELOMA [None]
